FAERS Safety Report 10067504 (Version 1)
Quarter: 2014Q2

REPORT INFORMATION
  Report Type: Spontaneous
  Country: IN (occurrence: None)
  Receive Date: 20140407
  Receipt Date: 20140407
  Transmission Date: 20141212
  Serious: Yes (Other)
  Sender: FDA-Public Use
  Company Number: 2014P1002750

PATIENT
  Age: 45 Year
  Sex: Female

DRUGS (6)
  1. TRANEXAMIC ACID [Suspect]
     Indication: VAGINAL HAEMORRHAGE
     Route: 042
  2. IRON [Concomitant]
  3. FOLIC ACID [Concomitant]
  4. CALCIUM CARONATE [Concomitant]
  5. CALCITROL [Concomitant]
  6. ERYTHROPOETIN [Concomitant]

REACTIONS (3)
  - Generalised tonic-clonic seizure [None]
  - Metabolic acidosis [None]
  - Overdose [None]
